FAERS Safety Report 13790962 (Version 1)
Quarter: 2017Q3

REPORT INFORMATION
  Report Type: Spontaneous
  Country: GB (occurrence: GB)
  Receive Date: 20170725
  Receipt Date: 20170725
  Transmission Date: 20171127
  Serious: Yes (Other)
  Sender: FDA-Public Use
  Company Number: GB-ABBVIE-17P-167-2049036-00

PATIENT
  Age: 19 Year
  Sex: Male
  Weight: 69 kg

DRUGS (4)
  1. AMOXICILLIN. [Concomitant]
     Active Substance: AMOXICILLIN
     Indication: PRODUCT USED FOR UNKNOWN INDICATION
     Dates: start: 20170519, end: 20170524
  2. PREDNISOLONE. [Concomitant]
     Active Substance: PREDNISOLONE
     Indication: PRODUCT USED FOR UNKNOWN INDICATION
     Dates: start: 20170705
  3. SALAMOL [Concomitant]
     Active Substance: ALBUTEROL
     Indication: PRODUCT USED FOR UNKNOWN INDICATION
     Route: 055
     Dates: start: 20161020
  4. CLARITHROMYCIN. [Suspect]
     Active Substance: CLARITHROMYCIN
     Indication: PRODUCT USED FOR UNKNOWN INDICATION
     Route: 048
     Dates: start: 20170530

REACTIONS (2)
  - Wheezing [Recovered/Resolved]
  - Rash generalised [Recovered/Resolved]

NARRATIVE: CASE EVENT DATE: 20170706
